FAERS Safety Report 16534162 (Version 1)
Quarter: 2019Q3

REPORT INFORMATION
  Report Type: Spontaneous
  Country: DE (occurrence: DE)
  Receive Date: 20190705
  Receipt Date: 20190705
  Transmission Date: 20191004
  Serious: Yes (Death, Hospitalization)
  Sender: FDA-Public Use
  Company Number: PHHY2019DE151365

PATIENT
  Age: 68 Year
  Sex: Female
  Weight: 95 kg

DRUGS (8)
  1. BEVACIZUMAB. [Suspect]
     Active Substance: BEVACIZUMAB
     Indication: BREAST CANCER METASTATIC
     Dosage: 980 MG, LAST DOSE PRIOR TO EVENTS, 05/AUG/2010
     Route: 042
     Dates: start: 20100506
  2. TAVOR [Concomitant]
     Indication: DEPRESSION
     Dosage: UNK
     Route: 048
  3. LERCANIDIPINE [Concomitant]
     Active Substance: LERCANIDIPINE
     Indication: PRODUCT USED FOR UNKNOWN INDICATION
     Dosage: UNK
     Route: 065
     Dates: start: 20001201
  4. BISOPROLOL [Concomitant]
     Active Substance: BISOPROLOL
     Indication: PRODUCT USED FOR UNKNOWN INDICATION
     Dosage: UNK
     Route: 065
     Dates: start: 20001201
  5. ACIC [Concomitant]
     Active Substance: ACYCLOVIR
     Indication: HERPES ZOSTER
     Dosage: UNK
     Route: 065
  6. ACIC [Concomitant]
     Active Substance: ACYCLOVIR
     Indication: PLEURAL EFFUSION
     Dosage: 5 MG, UNK
     Route: 048
     Dates: start: 20100414, end: 20100421
  7. PACLITAXEL. [Suspect]
     Active Substance: PACLITAXEL
     Indication: BREAST CANCER
     Dosage: 80 MG/M2, QD
     Route: 042
     Dates: start: 20100506, end: 20100819
  8. BEVACIZUMAB. [Suspect]
     Active Substance: BEVACIZUMAB
     Dosage: LAST DOSE PRIOR TO EVENTS, 05/AUG/2010
     Route: 042
     Dates: start: 20100805, end: 20100805

REACTIONS (7)
  - Pleural effusion [Fatal]
  - Malignant neoplasm progression [Fatal]
  - Cerebrovascular accident [Fatal]
  - Respiratory failure [Fatal]
  - Metastases to meninges [Fatal]
  - Cerebral infarction [Fatal]
  - Pneumonia [Fatal]

NARRATIVE: CASE EVENT DATE: 20100812
